FAERS Safety Report 5607282-9 (Version None)
Quarter: 2008Q1

REPORT INFORMATION
  Report Type: 
  Country: None (occurrence: None)
  Receive Date: 20080130
  Receipt Date: 20080122
  Transmission Date: 20080703
  Serious: Yes (Death, Hospitalization)
  Sender: FDA-Public Use
  Company Number: FR-WYE-G00927608

PATIENT
  Sex: Male

DRUGS (17)
  1. TAZOCILLINE [Suspect]
     Indication: FUSOBACTERIUM INFECTION
     Dosage: 1200 MG TOTAL DAILY
     Route: 042
     Dates: start: 20071102, end: 20071110
  2. TAZOCILLINE [Suspect]
     Indication: BACTERAEMIA
  3. CLONAZEPAM [Concomitant]
     Dosage: 2.5 MG/ML DOSAGE STRENGTH; 15 DROPS TOTAL DAILY
     Route: 048
  4. RISPERDAL [Concomitant]
     Route: 048
  5. SEROPRAM [Concomitant]
     Dosage: 20 MG DOSAGE STRENGTH; 30 MG TOTAL DAILY
     Route: 048
  6. SECTRAL [Concomitant]
     Dosage: 400 MG TOTAL DAILY
     Route: 048
  7. GENTALLINE [Suspect]
     Indication: FUSOBACTERIUM INFECTION
     Dosage: 150 MG TOTAL DAILY
     Route: 042
     Dates: start: 20071102, end: 20071104
  8. GENTALLINE [Suspect]
     Indication: BACTERAEMIA
  9. ARTANE [Concomitant]
     Dosage: 5 MG TOTAL DAILY
  10. FORLAX [Concomitant]
     Dosage: UNKNOWN
     Route: 048
  11. PROTEIN SUPPLEMENTS [Concomitant]
     Dosage: UNKNOWN
  12. AUGMENTIN '250' [Concomitant]
     Indication: FUSOBACTERIUM INFECTION
     Dosage: UNKNOWN
     Dates: start: 20071102
  13. AUGMENTIN '250' [Concomitant]
     Indication: BACTERAEMIA
  14. OFLOCET [Suspect]
     Indication: FUSOBACTERIUM INFECTION
     Dosage: 400 MG TOTAL DAILY
     Route: 042
     Dates: start: 20071102, end: 20071108
  15. OFLOCET [Suspect]
     Indication: BACTERAEMIA
  16. CONTRAMAL [Suspect]
     Dosage: 50 MG; FREQUENCY UNSPECIFIED; ON REQUEST
     Route: 048
     Dates: start: 20071101, end: 20071109
  17. NEXIUM [Concomitant]
     Dosage: 40 MG TOTAL DAILY

REACTIONS (15)
  - AMNESIA [None]
  - CANDIDA SEPSIS [None]
  - CEREBRAL ATROPHY [None]
  - CEREBRAL HAEMORRHAGE [None]
  - CONVULSION [None]
  - EXTREMITY CONTRACTURE [None]
  - FACIAL PALSY [None]
  - HEMIPARESIS [None]
  - MUTISM [None]
  - NERVOUS SYSTEM DISORDER [None]
  - OESOPHAGEAL HAEMORRHAGE [None]
  - OESOPHAGOBRONCHIAL FISTULA [None]
  - PSEUDOMONAL SEPSIS [None]
  - PYREXIA [None]
  - SYSTEMIC CANDIDA [None]
